FAERS Safety Report 5478340-7 (Version None)
Quarter: 2007Q4

REPORT INFORMATION
  Report Type: 
  Country: None (occurrence: None)
  Receive Date: 20071005
  Receipt Date: 20071001
  Transmission Date: 20080405
  Serious: Yes (Disabling)
  Sender: FDA-Public Use
  Company Number: A0682126A

PATIENT
  Age: 24 Year
  Sex: Male
  Weight: 104.5 kg

DRUGS (4)
  1. LAMICTAL [Suspect]
     Indication: BIPOLAR DISORDER
     Dosage: 400MG PER DAY
     Route: 048
     Dates: end: 20070101
  2. WELLBUTRIN XL [Concomitant]
     Dosage: 450U UNKNOWN
     Route: 048
     Dates: start: 20050101
  3. EFFEXOR XR [Concomitant]
     Dosage: 225U UNKNOWN
     Route: 065
     Dates: start: 20050101
  4. ADDERALL 10 [Concomitant]
     Dosage: 30U UNKNOWN
     Route: 065
     Dates: start: 20050101

REACTIONS (3)
  - ABASIA [None]
  - OEDEMA PERIPHERAL [None]
  - PITTING OEDEMA [None]
